FAERS Safety Report 25999816 (Version 1)
Quarter: 2025Q4

REPORT INFORMATION
  Report Type: Spontaneous
  Country: US (occurrence: US)
  Receive Date: 20251105
  Receipt Date: 20251105
  Transmission Date: 20260117
  Serious: No
  Sender: Tarsus Pharmaceuticals
  Company Number: US-TARSUS PHARMACEUTICALS-TSP-US-2025-001183

PATIENT

DRUGS (4)
  1. XDEMVY [Suspect]
     Active Substance: LOTILANER
     Indication: Ocular demodicosis
     Dosage: 1 DROP, BID
     Route: 047
     Dates: start: 20251009
  2. RILMENIDINE [Concomitant]
     Active Substance: RILMENIDINE
     Indication: Product used for unknown indication
     Dosage: 1 DOSAGE FORM, BID
     Route: 065
  3. TRAVOPROST [Concomitant]
     Active Substance: TRAVOPROST
     Indication: Product used for unknown indication
     Dosage: 1 DOSAGE FORM, QD
     Route: 047
  4. TIMOLOL [Concomitant]
     Active Substance: TIMOLOL
     Indication: Product used for unknown indication
     Dosage: 1 DOSAGE FORM, BID
     Route: 065

REACTIONS (5)
  - Lacrimation increased [Not Recovered/Not Resolved]
  - Eye irritation [Not Recovered/Not Resolved]
  - Eye pain [Not Recovered/Not Resolved]
  - Keratitis [Not Recovered/Not Resolved]
  - Product dose omission issue [Unknown]

NARRATIVE: CASE EVENT DATE: 20251015
